FAERS Safety Report 16531341 (Version 6)
Quarter: 2019Q3

REPORT INFORMATION
  Report Type: Report from Study
  Country: FR (occurrence: FR)
  Receive Date: 20190704
  Receipt Date: 20190920
  Transmission Date: 20191004
  Serious: Yes (Death, Life-Threatening, Hospitalization, Other)
  Sender: FDA-Public Use
  Company Number: FR-TESARO-2019-TSO01912-FR

PATIENT
  Age: 74 Year
  Sex: Female
  Weight: 46 kg

DRUGS (11)
  1. CARBOPLATIN. [Concomitant]
     Active Substance: CARBOPLATIN
     Dosage: 530 MG, UNK
     Dates: start: 20190108, end: 20190327
  2. CARBOPLATIN. [Concomitant]
     Active Substance: CARBOPLATIN
     Dosage: UNK
  3. ATENOLOL. [Concomitant]
     Active Substance: ATENOLOL
     Indication: HYPERTENSION
     Dosage: 50 MG, QD
     Route: 048
     Dates: start: 20180901
  4. PREDNISONE. [Concomitant]
     Active Substance: PREDNISONE
     Indication: PRODUCT USED FOR UNKNOWN INDICATION
     Dosage: UNK
     Route: 048
     Dates: start: 20180314
  5. FOSAVANCE [Concomitant]
     Active Substance: ALENDRONATE SODIUM\CHOLECALCIFEROL
     Indication: OSTEOPOROSIS
     Dosage: 70 MG  (0.5 PER WEEK)
     Route: 048
     Dates: start: 20180314
  6. NIRAPARIB [Suspect]
     Active Substance: NIRAPARIB
     Dosage: 200 MG, EVERY 1 CYCLE
     Route: 048
     Dates: start: 20190506, end: 20190514
  7. CORTANCYL [Concomitant]
     Active Substance: PREDNISONE
     Dosage: 1 MG, BID
     Route: 048
     Dates: start: 20180314
  8. SITAGLIPTINE [Concomitant]
     Active Substance: SITAGLIPTIN
     Indication: BLOOD CHOLESTEROL
     Dosage: 100 MG, QD
     Route: 048
     Dates: start: 20180901
  9. IMETH                              /00113801/ [Concomitant]
     Active Substance: METHOTREXATE
     Indication: POLYARTHRITIS
     Dosage: 10 MG (0.5/WEEK)
     Route: 048
     Dates: start: 20180314
  10. CORTANCYL [Concomitant]
     Active Substance: PREDNISONE
     Indication: POLYARTHRITIS
     Dosage: 5 MG, QD
     Route: 048
     Dates: start: 20180314
  11. OMEPRAZOL                          /00661201/ [Concomitant]
     Active Substance: OMEPRAZOLE
     Indication: GASTRIC MUCOSAL LESION
     Dosage: 20 MG, QD
     Route: 048
     Dates: start: 20180901

REACTIONS (4)
  - Febrile neutropenia [Fatal]
  - General physical health deterioration [Fatal]
  - Sepsis [Fatal]
  - Asthenia [Fatal]

NARRATIVE: CASE EVENT DATE: 20190513
